FAERS Safety Report 6763974-X (Version None)
Quarter: 2010Q2

REPORT INFORMATION
  Report Type: 
  Country: None (occurrence: None)
  Receive Date: 20100610
  Receipt Date: 20100601
  Transmission Date: 20101027
  Serious: Yes (Disabling)
  Sender: FDA-Public Use
  Company Number: JP-AMGEN-QUU416931

PATIENT
  Sex: Male

DRUGS (7)
  1. ENBREL [Suspect]
     Indication: RHEUMATOID ARTHRITIS
     Dosage: UNSPECIFIED
     Route: 058
     Dates: start: 20080804, end: 20100527
  2. FOLIAMIN [Suspect]
  3. METOLATE [Suspect]
  4. VOLTAREN [Concomitant]
  5. HYPEN [Concomitant]
  6. ZANTAC [Concomitant]
  7. BENET [Concomitant]

REACTIONS (1)
  - COLITIS ULCERATIVE [None]
